FAERS Safety Report 4881102-2 (Version None)
Quarter: 2005Q4

REPORT INFORMATION
  Report Type: 
  Country: None (occurrence: None)
  Receive Date: 20051223
  Receipt Date: 20050921
  Transmission Date: 20060501
  Serious: No
  Sender: FDA-Public Use
  Company Number: 05P-163-0311717-00

PATIENT
  Age: 22 Year
  Sex: Female
  Weight: 39.0093 kg

DRUGS (10)
  1. HUMIRA [Suspect]
     Indication: CROHN'S DISEASE
     Dosage: 40 MG, 1 IN 2 WK, SUBCUTANEOUS
     Route: 058
     Dates: start: 20050906
  2. OXYCODONE HCL [Concomitant]
  3. METHADONE [Concomitant]
  4. ESOMEPRAZOLE [Concomitant]
  5. LUNESTA [Concomitant]
  6. CITALOPRAM HYDROBROMIDE [Concomitant]
  7. MERCAPTOPURINE [Concomitant]
  8. MELOXICAM [Concomitant]
  9. PREDNISONE [Concomitant]
  10. IBUPROFEN [Concomitant]

REACTIONS (10)
  - ABDOMINAL PAIN [None]
  - CHILLS [None]
  - FATIGUE [None]
  - HEADACHE [None]
  - INJECTION SITE IRRITATION [None]
  - INJECTION SITE PAIN [None]
  - MALAISE [None]
  - NAUSEA [None]
  - PAIN [None]
  - PYREXIA [None]
